FAERS Safety Report 5982548-1 (Version None)
Quarter: 2008Q4

REPORT INFORMATION
  Report Type: 
  Country: None (occurrence: None)
  Receive Date: 20081208
  Receipt Date: 20081127
  Transmission Date: 20090506
  Serious: Yes (Hospitalization, Other)
  Sender: FDA-Public Use
  Company Number: PHHY2008GB17822

PATIENT
  Sex: Female

DRUGS (6)
  1. ACLASTA [Suspect]
     Indication: OSTEOPOROSIS
     Dosage: UNK
     Route: 042
     Dates: start: 20080107
  2. MORPHINE SULFATE [Concomitant]
  3. MOVICOL [Concomitant]
  4. MAXOLON [Concomitant]
  5. DOXAZOSIN MESYLATE [Concomitant]
  6. DEXAMETHASONE [Concomitant]
     Dosage: 4 MG, BID

REACTIONS (7)
  - ARTHRALGIA [None]
  - BIOPSY BONE [None]
  - BLOOD CREATININE INCREASED [None]
  - INFLUENZA LIKE ILLNESS [None]
  - METASTATIC NEOPLASM [None]
  - MUSCULAR WEAKNESS [None]
  - RENAL CELL CARCINOMA [None]
